FAERS Safety Report 17751190 (Version 3)
Quarter: 2020Q3

REPORT INFORMATION
  Report Type: Spontaneous
  Country: US (occurrence: US)
  Receive Date: 20200506
  Receipt Date: 20200929
  Transmission Date: 20201102
  Serious: Yes (Disabling)
  Sender: FDA-Public Use
  Company Number: US-SA-2020SA112865

PATIENT

DRUGS (21)
  1. AMIODARONE [Concomitant]
     Active Substance: AMIODARONE
  2. GABAPENTIN. [Concomitant]
     Active Substance: GABAPENTIN
  3. LEVETIRACETAM. [Concomitant]
     Active Substance: LEVETIRACETAM
  4. SPIRIVA RESPIMAT [Concomitant]
     Active Substance: TIOTROPIUM BROMIDE
  5. VITAMIN C [Concomitant]
     Active Substance: ASCORBIC ACID
  6. CLOPIDOGREL [Concomitant]
     Active Substance: CLOPIDOGREL BISULFATE
  7. DULOXETINE. [Concomitant]
     Active Substance: DULOXETINE
  8. RANOLAZINE. [Concomitant]
     Active Substance: RANOLAZINE
  9. TRELEGY ELLIPTA [Concomitant]
     Active Substance: FLUTICASONE FUROATE\UMECLIDINIUM BROMIDE\VILANTEROL TRIFENATATE
  10. FUROSEMIDE. [Concomitant]
     Active Substance: FUROSEMIDE
  11. LISINOPRIL. [Concomitant]
     Active Substance: LISINOPRIL
  12. METHOTREXATE. [Concomitant]
     Active Substance: METHOTREXATE
  13. POTASSIUM CHLORIDE. [Concomitant]
     Active Substance: POTASSIUM CHLORIDE
  14. KEVZARA [Suspect]
     Active Substance: SARILUMAB
     Indication: PRODUCT USE IN UNAPPROVED INDICATION
     Dosage: 200 MG, QOW
     Route: 058
     Dates: start: 202004
  15. METOPROLOL. [Concomitant]
     Active Substance: METOPROLOL
  16. PANTOPRAZOLE [Concomitant]
     Active Substance: PANTOPRAZOLE
  17. VITAMIN D [VITAMIN D NOS] [Concomitant]
     Active Substance: VITAMIN D NOS
  18. ATORVASTATIN [Concomitant]
     Active Substance: ATORVASTATIN
  19. BREO ELLIPTA [Concomitant]
     Active Substance: FLUTICASONE FUROATE\VILANTEROL TRIFENATATE
  20. ELIQUIS [Concomitant]
     Active Substance: APIXABAN
  21. VITAMINS NOS [Concomitant]
     Active Substance: VITAMINS

REACTIONS (5)
  - Fatigue [Unknown]
  - Product dose omission issue [Unknown]
  - Loss of personal independence in daily activities [Unknown]
  - Pain [Unknown]
  - Memory impairment [Unknown]

NARRATIVE: CASE EVENT DATE: 2020
